FAERS Safety Report 12841594 (Version 1)
Quarter: 2016Q4

REPORT INFORMATION
  Report Type: Spontaneous
  Country: US (occurrence: US)
  Receive Date: 20161012
  Receipt Date: 20161012
  Transmission Date: 20170207
  Serious: Yes (Other)
  Sender: FDA-Public Use
  Company Number: US-BAYER-2016-194352

PATIENT
  Age: 78 Year
  Sex: Male
  Weight: 63.49 kg

DRUGS (2)
  1. MAGNESIUM [Concomitant]
     Active Substance: MAGNESIUM
  2. PHILLIPS^ CHEWABLE TABLETS MINT [Suspect]
     Active Substance: MAGNESIUM HYDROXIDE
     Route: 048

REACTIONS (5)
  - Product use issue [Unknown]
  - Pain [Recovered/Resolved]
  - Drug dependence [Not Recovered/Not Resolved]
  - Weight decreased [Not Recovered/Not Resolved]
  - Diarrhoea [Recovered/Resolved]
